FAERS Safety Report 13518202 (Version 1)
Quarter: 2017Q2

REPORT INFORMATION
  Report Type: Spontaneous
  Country: RU (occurrence: RU)
  Receive Date: 20170505
  Receipt Date: 20170505
  Transmission Date: 20170830
  Serious: Yes (Other)
  Sender: FDA-Public Use
  Company Number: RU-MYLANLABS-2017M1026913

PATIENT

DRUGS (19)
  1. METHOTREXATE. [Suspect]
     Active Substance: METHOTREXATE
     Indication: PULMONARY SARCOIDOSIS
     Dosage: INCREASED TO 10 MG ONCE PER WEEK
     Route: 065
  2. PENTOXIFYLLINE. [Suspect]
     Active Substance: PENTOXIFYLLINE
     Indication: PULMONARY SARCOIDOSIS
     Route: 048
     Dates: start: 2004
  3. METHOTREXATE. [Suspect]
     Active Substance: METHOTREXATE
     Route: 065
  4. PREDNISOLONE. [Suspect]
     Active Substance: PREDNISOLONE
     Dosage: 5 MG/DAY
     Route: 048
     Dates: start: 2006, end: 200711
  5. PREDNISOLONE. [Suspect]
     Active Substance: PREDNISOLONE
     Dosage: 20 MG/DAY
     Route: 048
     Dates: start: 200806
  6. ACETYLCYSTEINE. [Concomitant]
     Active Substance: ACETYLCYSTEINE
     Indication: PULMONARY SARCOIDOSIS
     Dosage: 600 MG/DAY
     Route: 065
  7. ACETYLCYSTEINE. [Concomitant]
     Active Substance: ACETYLCYSTEINE
     Indication: CUTANEOUS SARCOIDOSIS
  8. PREDNISOLONE. [Suspect]
     Active Substance: PREDNISOLONE
     Dosage: SECOND COURSE AT 30 MG/DAY; REDUCED TO 5 MG/DAY
     Route: 048
     Dates: start: 2006, end: 200711
  9. TOCOPHEROL [Concomitant]
     Active Substance: TOCOPHEROL
     Indication: CUTANEOUS SARCOIDOSIS
  10. PREDNISOLONE. [Suspect]
     Active Substance: PREDNISOLONE
     Dosage: 40 MG/DAY; DECREASED TO 20 MG/DAY
     Route: 048
     Dates: start: 200806
  11. TOCOPHEROL [Concomitant]
     Active Substance: TOCOPHEROL
     Indication: PULMONARY SARCOIDOSIS
     Dosage: 200 MG IN THE MORNING AND EVENING
     Route: 065
  12. AEVIT [Concomitant]
     Active Substance: .ALPHA.-TOCOPHEROL\RETINOL
     Indication: PULMONARY SARCOIDOSIS
     Route: 065
  13. PREDNISOLONE. [Suspect]
     Active Substance: PREDNISOLONE
     Indication: PULMONARY SARCOIDOSIS
     Dosage: 30 MG/DAY; REDUCED TO 15 MG/DAY
     Route: 048
     Dates: start: 2005
  14. ISONIAZID. [Concomitant]
     Active Substance: ISONIAZID
     Indication: CUTANEOUS SARCOIDOSIS
  15. METHOTREXATE. [Suspect]
     Active Substance: METHOTREXATE
     Indication: CUTANEOUS SARCOIDOSIS
     Dosage: INCREASED TO 15 MG ONCE PER WEEK
     Route: 065
  16. ISONIAZID. [Concomitant]
     Active Substance: ISONIAZID
     Indication: PULMONARY SARCOIDOSIS
     Route: 065
  17. PREDNISOLONE. [Suspect]
     Active Substance: PREDNISOLONE
     Indication: CUTANEOUS SARCOIDOSIS
     Dosage: 15 MG PER DAY; 9 MONTH COURSE
     Route: 048
     Dates: start: 2005
  18. PENTOXIFYLLINE. [Suspect]
     Active Substance: PENTOXIFYLLINE
     Indication: CUTANEOUS SARCOIDOSIS
  19. AEVIT [Concomitant]
     Active Substance: .ALPHA.-TOCOPHEROL\RETINOL
     Indication: CUTANEOUS SARCOIDOSIS

REACTIONS (9)
  - Rectal haemorrhage [Unknown]
  - Alanine aminotransferase increased [Recovered/Resolved]
  - Aspartate aminotransferase increased [Recovered/Resolved]
  - Blood pressure decreased [Recovered/Resolved]
  - Duodenal ulcer [Unknown]
  - Cushing^s syndrome [Unknown]
  - Blood pressure increased [Unknown]
  - Nausea [Unknown]
  - Headache [Recovered/Resolved]

NARRATIVE: CASE EVENT DATE: 2004
